FAERS Safety Report 8209335-8 (Version None)
Quarter: 2012Q1

REPORT INFORMATION
  Report Type: 
  Country: None (occurrence: None)
  Receive Date: 20120314
  Receipt Date: 20120305
  Transmission Date: 20120608
  Serious: Yes (Hospitalization)
  Sender: FDA-Public Use
  Company Number: US-BAYER-2012-011758

PATIENT
  Age: 38 Year
  Sex: Female

DRUGS (5)
  1. DESYREL [Concomitant]
     Indication: INSOMNIA
     Dosage: 75 MG, HS
     Route: 048
  2. YASMIN [Suspect]
     Dosage: UNK
  3. MULTIVITAMINS WITH MINERALS [MULTIVITAMINS WITH MINERALS] [Concomitant]
     Dosage: 1 TAB (INTERPRETED AS TABLET) ONCE PER DAY, QD
     Route: 048
  4. DROSPIRENONE AND ETHINYL ESTRADIOL [Suspect]
  5. TAMIFLU [Concomitant]
     Dosage: 75 MG, UNK
     Route: 048
     Dates: start: 20090715

REACTIONS (3)
  - DEEP VEIN THROMBOSIS [None]
  - PAIN [None]
  - PULMONARY EMBOLISM [None]
